FAERS Safety Report 4829397-5 (Version None)
Quarter: 2005Q4

REPORT INFORMATION
  Report Type: 
  Country: None (occurrence: None)
  Receive Date: 20051028
  Receipt Date: 20050504
  Transmission Date: 20060501
  Serious: No
  Sender: FDA-Public Use
  Company Number: US131099

PATIENT
  Age: 67 Year
  Sex: Female

DRUGS (8)
  1. SENSIPAR [Suspect]
     Indication: HYPERPARATHYROIDISM SECONDARY
     Dosage: 60 MG, 1 IN 2 DAYS, PO
     Route: 048
     Dates: start: 20040902
  2. DIATX [Concomitant]
  3. TEMAZEPAM [Concomitant]
  4. ATENOLOL [Concomitant]
  5. SODIUM BICARBONATE [Concomitant]
  6. DOXERCALCIFEROL [Concomitant]
  7. PHOSLO [Concomitant]
  8. FERROUS PHOSPHOGLUCONATE [Concomitant]

REACTIONS (1)
  - HYPERCHOLESTEROLAEMIA [None]
